FAERS Safety Report 9894050 (Version 1)
Quarter: 2014Q1

REPORT INFORMATION
  Report Type: Spontaneous
  Country: US (occurrence: US)
  Receive Date: 20140213
  Receipt Date: 20140213
  Transmission Date: 20141002
  Serious: No
  Sender: FDA-Public Use
  Company Number: US-PFIZER INC-2014039058

PATIENT
  Age: 67 Year
  Sex: Female
  Weight: 91.61 kg

DRUGS (4)
  1. VENLAFAXINE HCL [Suspect]
     Indication: DEPRESSION
     Dosage: 37.5 MG, 1X/DAY
     Route: 048
     Dates: start: 201312
  2. WELLBUTRIN [Suspect]
     Indication: DEPRESSION
     Dosage: 150 MG, 3X/DAY
  3. WELLBUTRIN SR [Concomitant]
     Dosage: 150 MG, 3X/DAY
  4. DICLOFENAC POTASSIUM [Concomitant]
     Indication: OSTEOARTHRITIS
     Dosage: UNK

REACTIONS (5)
  - Flat affect [Not Recovered/Not Resolved]
  - Dysuria [Unknown]
  - Alopecia [Not Recovered/Not Resolved]
  - Weight increased [Not Recovered/Not Resolved]
  - Mood altered [Unknown]
